FAERS Safety Report 4518756-6 (Version None)
Quarter: 2004Q4

REPORT INFORMATION
  Report Type: 
  Country: None (occurrence: None)
  Receive Date: 20041104
  Receipt Date: 20040715
  Transmission Date: 20050328
  Serious: Yes (Disabling, Other)
  Sender: FDA-Public Use
  Company Number: PHEH2004US07659

PATIENT

DRUGS (2)
  1. ESTROGENS (ESTROGENS) [Suspect]
     Indication: HORMONE REPLACEMENT THERAPY
  2. PREMPRO [Suspect]

REACTIONS (5)
  - ANXIETY [None]
  - BREAST CANCER FEMALE [None]
  - EMOTIONAL DISTRESS [None]
  - INJURY [None]
  - SCAR [None]
